FAERS Safety Report 5251104-5 (Version None)
Quarter: 2007Q1

REPORT INFORMATION
  Report Type: 
  Country: None (occurrence: None)
  Receive Date: 20070228
  Receipt Date: 20060929
  Transmission Date: 20070707
  Serious: No
  Sender: FDA-Public Use
  Company Number: US-GLAXOSMITHKLINE-A0618077A

PATIENT
  Sex: Female

DRUGS (3)
  1. LAMICTAL [Suspect]
     Indication: BIPOLAR DISORDER
     Dosage: 250MG PER DAY
     Route: 050
  2. SEROQUEL [Concomitant]
     Dosage: 100MG AT NIGHT
     Route: 050
  3. ANTABUSE [Concomitant]

REACTIONS (2)
  - ACCIDENTAL EXPOSURE [None]
  - RASH PRURITIC [None]
